FAERS Safety Report 16252114 (Version 6)
Quarter: 2019Q3

REPORT INFORMATION
  Report Type: Spontaneous
  Country: US (occurrence: US)
  Receive Date: 20190429
  Receipt Date: 20190826
  Transmission Date: 20191004
  Serious: Yes (Death, Hospitalization, Other)
  Sender: FDA-Public Use
  Company Number: US-PFIZER INC-2019177825

PATIENT
  Age: 76 Year
  Sex: Male
  Weight: 102.4 kg

DRUGS (13)
  1. VFEND [Suspect]
     Active Substance: VORICONAZOLE
     Indication: LEUKAEMIA
     Dosage: UNK UNK, 2X/DAY
     Dates: start: 201711, end: 201904
  2. VENCLEXTA [Concomitant]
     Active Substance: VENETOCLAX
     Dosage: 400 MG, DAILY
  3. VFEND [Suspect]
     Active Substance: VORICONAZOLE
     Dosage: 200 MG, 2X/DAY
     Dates: start: 201810, end: 201904
  4. VENCLEXTA [Concomitant]
     Active Substance: VENETOCLAX
     Dosage: 400 MG, 1X/DAY
     Dates: start: 201902
  5. VENCLEXTA [Concomitant]
     Active Substance: VENETOCLAX
     Dosage: 4 DF, DAILY, (TOOK 4 CANCER PILLS PER DAY)
  6. LEVOFLOXACIN. [Concomitant]
     Active Substance: LEVOFLOXACIN
     Dosage: 500 MG, 1X/DAY
     Dates: start: 20180601
  7. ALLOPURINOL. [Concomitant]
     Active Substance: ALLOPURINOL
     Dosage: UNK
     Dates: start: 201902
  8. CIPROFLOXACIN. [Concomitant]
     Active Substance: CIPROFLOXACIN
     Dosage: UNK
     Dates: start: 201801
  9. ACYCLOVIR [ACICLOVIR] [Concomitant]
     Active Substance: ACYCLOVIR
     Dosage: 400 MG, 2X/DAY
     Dates: start: 20180105
  10. VENCLEXTA [Concomitant]
     Active Substance: VENETOCLAX
     Dosage: UNK
     Dates: start: 201903
  11. VFEND [Suspect]
     Active Substance: VORICONAZOLE
     Dosage: UNK, 2X/DAY
     Dates: start: 20171221, end: 201904
  12. DOXYCYCLINE. [Concomitant]
     Active Substance: DOXYCYCLINE
     Dosage: 100 MG, 2X/DAY
     Dates: start: 20180120
  13. ALLOPURINOL. [Concomitant]
     Active Substance: ALLOPURINOL
     Dosage: 300 MG, 1X/DAY
     Dates: start: 20190125

REACTIONS (10)
  - Off label use [Fatal]
  - Platelet count decreased [Not Recovered/Not Resolved]
  - Disease recurrence [Not Recovered/Not Resolved]
  - Sepsis [Not Recovered/Not Resolved]
  - Platelet count abnormal [Not Recovered/Not Resolved]
  - Decubitus ulcer [Unknown]
  - Drug ineffective for unapproved indication [Fatal]
  - Neoplasm recurrence [Unknown]
  - Pyrexia [Unknown]
  - Decreased appetite [Unknown]

NARRATIVE: CASE EVENT DATE: 201711
